FAERS Safety Report 16846327 (Version 1)
Quarter: 2019Q3

REPORT INFORMATION
  Report Type: Spontaneous
  Country: CA (occurrence: CA)
  Receive Date: 20190924
  Receipt Date: 20190924
  Transmission Date: 20191005
  Serious: Yes (Other)
  Sender: FDA-Public Use
  Company Number: CA-JNJFOC-20190923707

PATIENT
  Age: 58 Year
  Sex: Female

DRUGS (1)
  1. INVOKANA [Suspect]
     Active Substance: CANAGLIFLOZIN
     Indication: GLUCOSE TOLERANCE IMPAIRED
     Route: 048

REACTIONS (14)
  - Feeling abnormal [Unknown]
  - Urine odour abnormal [Unknown]
  - Dyspepsia [Unknown]
  - Asthenia [Unknown]
  - Thirst [Unknown]
  - Dysgeusia [Unknown]
  - Memory impairment [Unknown]
  - Decreased appetite [Unknown]
  - Renal pain [Unknown]
  - Loss of consciousness [Unknown]
  - Back pain [Unknown]
  - Off label use [Unknown]
  - Panic attack [Unknown]
  - Product use in unapproved indication [Unknown]
